FAERS Safety Report 5208856-X (Version None)
Quarter: 2007Q1

REPORT INFORMATION
  Report Type: 
  Country: None (occurrence: None)
  Receive Date: 20070111
  Receipt Date: 20070111
  Transmission Date: 20070707
  Serious: Yes (Hospitalization)
  Sender: FDA-Public Use
  Company Number: None

PATIENT
  Sex: Female
  Weight: 73.7095 kg

DRUGS (7)
  1. CARBOPLATIN [Suspect]
     Indication: OVARIAN CANCER
     Dosage: AUC 5 Q21 DAYS IV DRIP
     Route: 041
     Dates: start: 20050808, end: 20051007
  2. TAXOL [Suspect]
     Indication: OVARIAN CANCER
     Dosage: 175 MG Q 21 DAYS IV DRIP
     Route: 041
     Dates: start: 20050808, end: 20051007
  3. PREMPRO [Concomitant]
  4. PROTONIX [Concomitant]
  5. ASPIRIN [Concomitant]
  6. STOOL SOFTENER [Concomitant]
  7. METAMUCIL [Concomitant]

REACTIONS (3)
  - NAUSEA [None]
  - PYREXIA [None]
  - VOMITING [None]
